FAERS Safety Report 10868364 (Version 2)
Quarter: 2015Q2

REPORT INFORMATION
  Report Type: Spontaneous
  Country: US (occurrence: US)
  Receive Date: 20150225
  Receipt Date: 20150406
  Transmission Date: 20150821
  Serious: Yes (Hospitalization, Other)
  Sender: FDA-Public Use
  Company Number: US-BAYER-2015-028535

PATIENT
  Age: 22 Year
  Sex: Female
  Weight: 63.39 kg

DRUGS (3)
  1. MACROBID [Concomitant]
     Active Substance: NITROFURANTOIN\NITROFURANTOIN MONOHYDRATE
  2. MIRENA [Suspect]
     Active Substance: LEVONORGESTREL
     Indication: CONTRACEPTION
     Dosage: 20 MCG/24HR, CONT
     Route: 015
     Dates: start: 20130115, end: 20130405
  3. VICODIN [Concomitant]
     Active Substance: ACETAMINOPHEN\HYDROCODONE BITARTRATE

REACTIONS (7)
  - Embedded device [None]
  - Injury [None]
  - Pelvic inflammatory disease [None]
  - Pain [None]
  - Abdominal pain [None]
  - Off label use [None]
  - Device difficult to use [None]

NARRATIVE: CASE EVENT DATE: 20130311
